FAERS Safety Report 22520544 (Version 1)
Quarter: 2023Q2

REPORT INFORMATION
  Report Type: Spontaneous
  Country: ES (occurrence: ES)
  Receive Date: 20230605
  Receipt Date: 20230605
  Transmission Date: 20230721
  Serious: Yes (Hospitalization)
  Sender: FDA-Public Use
  Company Number: ES-IFC-2022001955

PATIENT
  Age: 95 Year
  Sex: Female

DRUGS (8)
  1. TRIAMCINOLONE ACETONIDE [Suspect]
     Active Substance: TRIAMCINOLONE ACETONIDE
     Indication: Dermatitis diaper
     Dosage: UNK
  2. NYSTATIN [Suspect]
     Active Substance: NYSTATIN
     Indication: Dermatitis diaper
     Dosage: UNK
  3. DOXYCYCLINE [Suspect]
     Active Substance: DOXYCYCLINE
     Indication: Impetigo
     Dosage: 100 MG, QD (1/DAY), DOXYCYCLINE WAS ADDED TO THE TREATMENT AT A DOSE OF 100 MG/DAY ORALLY, PRESENTIN
     Route: 048
  4. MUPIROCIN CALCIUM [Interacting]
     Active Substance: MUPIROCIN CALCIUM
     Indication: Dermatitis diaper
     Dosage: UNK
  5. NEOMYCIN [Interacting]
     Active Substance: NEOMYCIN
     Indication: Dermatitis diaper
     Dosage: UNK
  6. LACTULOSE [Concomitant]
     Active Substance: LACTULOSE
     Indication: Product used for unknown indication
     Dosage: UNK
  7. QUETIAPINE [Concomitant]
     Active Substance: QUETIAPINE
     Indication: Product used for unknown indication
     Dosage: 25 MG,UNK
  8. FUROSEMIDE [Concomitant]
     Active Substance: FUROSEMIDE
     Indication: Product used for unknown indication
     Dosage: 40 MG,UNK

REACTIONS (2)
  - Condition aggravated [Recovering/Resolving]
  - Subcorneal pustular dermatosis [Recovering/Resolving]
